FAERS Safety Report 21608428 (Version 1)
Quarter: 2022Q4

REPORT INFORMATION
  Report Type: Spontaneous
  Country: JP (occurrence: JP)
  Receive Date: 20221117
  Receipt Date: 20221117
  Transmission Date: 20230113
  Serious: Yes (Death, Other)
  Sender: FDA-Public Use
  Company Number: JP-ABBVIE-4204064

PATIENT

DRUGS (1)
  1. VENCLEXTA [Suspect]
     Active Substance: VENETOCLAX
     Indication: Acute myeloid leukaemia
     Route: 048

REACTIONS (18)
  - Death [Fatal]
  - Acute myeloid leukaemia [Fatal]
  - Haemoglobin decreased [Unknown]
  - Acute myeloid leukaemia recurrent [Unknown]
  - Infection [Fatal]
  - Pulmonary alveolar haemorrhage [Unknown]
  - Haemophagocytic lymphohistiocytosis [Unknown]
  - White blood cell count decreased [Unknown]
  - Haemorrhage [Fatal]
  - Cardiac failure [Unknown]
  - Platelet count decreased [Unknown]
  - Anaemia [Unknown]
  - Neutropenia [Unknown]
  - Haematological infection [Unknown]
  - Pneumonia [Unknown]
  - Sepsis [Fatal]
  - Pulmonary alveolar haemorrhage [Fatal]
  - Febrile neutropenia [Unknown]
